FAERS Safety Report 9447840 (Version 2)
Quarter: 2013Q3

REPORT INFORMATION
  Report Type: Report from Study
  Country: US (occurrence: US)
  Receive Date: 20130808
  Receipt Date: 20130918
  Transmission Date: 20140515
  Serious: Yes (Other)
  Sender: FDA-Public Use
  Company Number: US-SANOFI-AVENTIS-2013SA079153

PATIENT
  Sex: Female

DRUGS (1)
  1. AUBAGIO [Suspect]
     Indication: MULTIPLE SCLEROSIS
     Dosage: STARTED FROM 8 MONTHS.
     Route: 065
     Dates: start: 201001

REACTIONS (8)
  - Road traffic accident [Unknown]
  - Stress [Unknown]
  - Migraine with aura [Recovered/Resolved]
  - Visual acuity reduced [Recovered/Resolved]
  - Musculoskeletal pain [Unknown]
  - Multiple sclerosis relapse [Not Recovered/Not Resolved]
  - Fall [Unknown]
  - Hypoaesthesia [Unknown]
